FAERS Safety Report 11048702 (Version 1)
Quarter: 2015Q2

REPORT INFORMATION
  Report Type: Spontaneous
  Country: IT (occurrence: IT)
  Receive Date: 20150420
  Receipt Date: 20150420
  Transmission Date: 20150821
  Serious: Yes (Other)
  Sender: FDA-Public Use
  Company Number: IT-WATSON-2015-08114

PATIENT
  Age: 3 Year
  Sex: Female
  Weight: 12 kg

DRUGS (1)
  1. MICROPAM [Suspect]
     Active Substance: DIAZEPAM
     Indication: EPILEPSY
     Dosage: 10 MG, TOTAL
     Route: 054
     Dates: start: 20141121, end: 20141121

REACTIONS (2)
  - Overdose [Recovering/Resolving]
  - Sopor [Recovering/Resolving]

NARRATIVE: CASE EVENT DATE: 20141121
